FAERS Safety Report 7985938-0 (Version None)
Quarter: 2011Q4

REPORT INFORMATION
  Report Type: 
  Country: None (occurrence: None)
  Receive Date: 20111216
  Receipt Date: 20111209
  Transmission Date: 20120403
  Serious: Yes (Other)
  Sender: FDA-Public Use
  Company Number: DE-B.I. PHARMACEUTICALS,INC./RIDGEFIELD-2011-DE-06763DE

PATIENT
  Sex: Male
  Weight: 90 kg

DRUGS (6)
  1. ATACAND [Suspect]
     Route: 048
     Dates: start: 20111209, end: 20111209
  2. DIAZEPAM [Suspect]
     Dosage: 400 MG
     Route: 048
     Dates: start: 20111209, end: 20111209
  3. TILIDIN [Suspect]
     Dosage: 50 ML
     Route: 048
     Dates: start: 20111209, end: 20111209
  4. CLONIDINE [Suspect]
     Dosage: 7.5 MG
     Route: 048
     Dates: start: 20111209, end: 20111209
  5. METOPROLOL SUCCINATE [Suspect]
     Dosage: 4750 MG
     Route: 048
     Dates: start: 20111209, end: 20111209
  6. CANDESARTAN CILEXETIL [Suspect]
     Dosage: 1072 MG
     Route: 048
     Dates: start: 20111209, end: 20111209

REACTIONS (3)
  - SOMNOLENCE [None]
  - BRADYCARDIA [None]
  - SUICIDE ATTEMPT [None]
